FAERS Safety Report 5392179-2 (Version None)
Quarter: 2007Q3

REPORT INFORMATION
  Report Type: 
  Country: None (occurrence: None)
  Receive Date: 20070717
  Receipt Date: 20070717
  Transmission Date: 20080115
  Serious: Yes (Other)
  Sender: FDA-Public Use
  Company Number: None

PATIENT
  Age: 54 Year
  Sex: Male
  Weight: 77.1115 kg

DRUGS (1)
  1. PROPOFOL [Suspect]
     Indication: ANAESTHESIA
     Dosage: ONCE IV
     Route: 042
     Dates: start: 19940424, end: 19940424

REACTIONS (6)
  - DIZZINESS [None]
  - FATIGUE [None]
  - FEELING DRUNK [None]
  - NAUSEA [None]
  - POST PROCEDURAL COMPLICATION [None]
  - SOMNOLENCE [None]
